FAERS Safety Report 8076065-5 (Version None)
Quarter: 2012Q1

REPORT INFORMATION
  Report Type: 
  Country: None (occurrence: None)
  Receive Date: 20120127
  Receipt Date: 20110629
  Transmission Date: 20120608
  Serious: No
  Sender: FDA-Public Use
  Company Number: US-GLAXOSMITHKLINE-A0934967A

PATIENT
  Age: 51 Year
  Sex: Female
  Weight: 77.3 kg

DRUGS (3)
  1. WELLBUTRIN [Suspect]
     Indication: DEPRESSION
     Dates: start: 19940101
  2. SYNTHROID [Suspect]
     Indication: HYPOTHYROIDISM
     Route: 065
  3. LORAZEPAM [Concomitant]

REACTIONS (11)
  - HYPERHIDROSIS [None]
  - HEADACHE [None]
  - FEELING COLD [None]
  - ASTHENIA [None]
  - COLD SWEAT [None]
  - BLOOD THYROID STIMULATING HORMONE INCREASED [None]
  - NAUSEA [None]
  - DIZZINESS [None]
  - NECK PAIN [None]
  - PAIN IN JAW [None]
  - MUSCULOSKELETAL PAIN [None]
